FAERS Safety Report 4341049-7 (Version None)
Quarter: 2004Q2

REPORT INFORMATION
  Report Type: 
  Country: None (occurrence: None)
  Receive Date: 20040419
  Receipt Date: 19990809
  Transmission Date: 20050107
  Serious: Yes (Congenital Anomaly)
  Sender: FDA-Public Use
  Company Number: US-MERCK-00064364

PATIENT

DRUGS (6)
  1. TYLENOL (CAPLET) [Concomitant]
  2. CAFFEINE [Concomitant]
  3. SUDAFED S.A. [Concomitant]
  4. DEMULEN 1/35-21 [Concomitant]
  5. MEVACOR [Suspect]
  6. VITAMINS [Concomitant]

REACTIONS (4)
  - CAESAREAN SECTION [None]
  - CONGENITAL ANOMALY [None]
  - EAR MALFORMATION [None]
  - MATERNAL DRUGS AFFECTING FOETUS [None]
